FAERS Safety Report 7529681-0 (Version None)
Quarter: 2011Q2

REPORT INFORMATION
  Report Type: 
  Country: None (occurrence: None)
  Receive Date: 20110607
  Receipt Date: 20110527
  Transmission Date: 20111010
  Serious: Yes (Death)
  Sender: FDA-Public Use
  Company Number: A0928596A

PATIENT
  Age: 69 Year
  Sex: Male

DRUGS (4)
  1. PROMACTA [Suspect]
     Dosage: 50MG PER DAY
     Dates: start: 20101217, end: 20110128
  2. CORTICOSTEROIDS [Concomitant]
     Indication: IDIOPATHIC THROMBOCYTOPENIC PURPURA
  3. RITUXIMAB [Concomitant]
  4. CYCLOPHOSPHAMIDE [Concomitant]

REACTIONS (13)
  - HAEMOLYSIS [None]
  - CHRONIC LYMPHOCYTIC LEUKAEMIA [None]
  - FALL [None]
  - LIVER DISORDER [None]
  - LYMPHADENOPATHY [None]
  - DISEASE PROGRESSION [None]
  - ANAEMIA [None]
  - PYREXIA [None]
  - NEUTROPENIA [None]
  - WEIGHT DECREASED [None]
  - PANCYTOPENIA [None]
  - FATIGUE [None]
  - CHILLS [None]
